FAERS Safety Report 5464132-1 (Version None)
Quarter: 2007Q3

REPORT INFORMATION
  Report Type: 
  Country: None (occurrence: None)
  Receive Date: 20070921
  Receipt Date: 20070913
  Transmission Date: 20080115
  Serious: Yes (Other)
  Sender: FDA-Public Use
  Company Number: US-BAYER-200712968BWH

PATIENT
  Age: 52 Year
  Sex: Male

DRUGS (3)
  1. NEXAVAR [Suspect]
     Indication: HEPATIC NEOPLASM MALIGNANT
     Dosage: TOTAL DAILY DOSE: 400 MG  UNIT DOSE: 200 MG
     Route: 048
     Dates: start: 20070901
  2. NEXAVAR [Suspect]
     Dosage: TOTAL DAILY DOSE: 800 MG  UNIT DOSE: 200 MG
     Route: 048
     Dates: start: 20070801, end: 20070901
  3. CHEMOTHERAPY [Concomitant]
     Route: 042
     Dates: start: 20070201, end: 20070801

REACTIONS (5)
  - DIARRHOEA [None]
  - DIPLOPIA [None]
  - DRY SKIN [None]
  - NERVOUS SYSTEM DISORDER [None]
  - RASH [None]
